FAERS Safety Report 18728871 (Version 3)
Quarter: 2021Q1

REPORT INFORMATION
  Report Type: Report from Study
  Country: None (occurrence: US)
  Receive Date: 20210112
  Receipt Date: 20210316
  Transmission Date: 20210419
  Serious: Yes (Other)
  Sender: FDA-Public Use
  Company Number: US-ABBVIE-21K-163-3725424-00

PATIENT
  Age: 63 Year
  Sex: Female
  Weight: 108.96 kg

DRUGS (3)
  1. COVID?19 VACCINE [Concomitant]
     Indication: COVID-19 IMMUNISATION
     Route: 050
  2. RINVOQ [Suspect]
     Active Substance: UPADACITINIB
     Route: 048
  3. RINVOQ [Suspect]
     Active Substance: UPADACITINIB
     Indication: RHEUMATOID ARTHRITIS
     Route: 048
     Dates: start: 202004

REACTIONS (12)
  - Neck pain [Unknown]
  - Malaise [Unknown]
  - Therapeutic response unexpected [Unknown]
  - Phantom limb syndrome [Unknown]
  - Pain in extremity [Unknown]
  - Pre-existing condition improved [Unknown]
  - Infection [Unknown]
  - Renal function test abnormal [Unknown]
  - Arthralgia [Unknown]
  - Ear infection [Unknown]
  - Bronchitis [Unknown]
  - Oropharyngeal pain [Unknown]

NARRATIVE: CASE EVENT DATE: 202011
